FAERS Safety Report 9720243 (Version 1)
Quarter: 2013Q4

REPORT INFORMATION
  Report Type: Spontaneous
  Country: GB (occurrence: GB)
  Receive Date: 20131129
  Receipt Date: 20131129
  Transmission Date: 20140711
  Serious: Yes (Hospitalization, Other)
  Sender: FDA-Public Use
  Company Number: GB-RANBAXY-2013R1-75502

PATIENT
  Age: 53 Year
  Sex: Male
  Weight: 78 kg

DRUGS (1)
  1. RISPERIDONE [Suspect]
     Indication: PSYCHOTIC DISORDER
     Dosage: UNK, QD
     Route: 048
     Dates: start: 20130917, end: 20131018

REACTIONS (1)
  - Supraventricular tachycardia [Recovered/Resolved]
